FAERS Safety Report 9195891 (Version 4)
Quarter: 2014Q3

REPORT INFORMATION
  Report Type: Spontaneous
  Country: US (occurrence: US)
  Receive Date: 20130328
  Receipt Date: 20140715
  Transmission Date: 20150326
  Serious: Yes (Hospitalization)
  Sender: FDA-Public Use
  Company Number: US-BAYER-2013-037389

PATIENT
  Age: 34 Year
  Sex: Female
  Weight: 63.49 kg

DRUGS (3)
  1. MIRENA [Suspect]
     Active Substance: LEVONORGESTREL
     Indication: CONTRACEPTION
     Dosage: 20 MCG/24HR, CONT
     Route: 015
     Dates: start: 20110421, end: 20111118
  2. MULTIVITAMIN [Concomitant]
     Active Substance: VITAMINS
  3. CALCIUM [Concomitant]
     Active Substance: CALCIUM

REACTIONS (8)
  - Device dislocation [None]
  - Pain [None]
  - Emotional distress [None]
  - Medical device discomfort [None]
  - Procedural pain [None]
  - Anxiety [None]
  - Device issue [None]
  - Injury [None]

NARRATIVE: CASE EVENT DATE: 201111
